FAERS Safety Report 6008073-X (Version None)
Quarter: 2008Q4

REPORT INFORMATION
  Report Type: 
  Country: None (occurrence: None)
  Receive Date: 20081217
  Receipt Date: 20080813
  Transmission Date: 20090506
  Serious: No
  Sender: FDA-Public Use
  Company Number: US-ASTRAZENECA-2008UW16626

PATIENT
  Age: 71 Year
  Sex: Male

DRUGS (10)
  1. CRESTOR [Suspect]
     Route: 048
  2. ACTOPLUS MET [Concomitant]
     Dosage: 15/850
  3. COREG [Concomitant]
  4. DIGOXIN [Concomitant]
  5. LASIX [Concomitant]
  6. PACERONE [Concomitant]
  7. POTASSIUM CHLORIDE [Concomitant]
  8. HYRALAZINE [Concomitant]
  9. PROTONIX [Concomitant]
  10. ALDACTONE [Concomitant]

REACTIONS (1)
  - GYNAECOMASTIA [None]
